FAERS Safety Report 8043373-3 (Version None)
Quarter: 2012Q1

REPORT INFORMATION
  Report Type: 
  Country: None (occurrence: None)
  Receive Date: 20120112
  Receipt Date: 20120106
  Transmission Date: 20120608
  Serious: Yes (Other)
  Sender: FDA-Public Use
  Company Number: US-BAYER-2012-002784

PATIENT
  Age: 39 Year
  Sex: Female

DRUGS (1)
  1. MAGNEVIST [Suspect]
     Indication: NUCLEAR MAGNETIC RESONANCE IMAGING
     Dosage: 100 ML, UNK
     Route: 042
     Dates: start: 20111209

REACTIONS (3)
  - CONVULSION [None]
  - SKIN DISCOLOURATION [None]
  - BLOOD PRESSURE DECREASED [None]
